FAERS Safety Report 5587115-X (Version None)
Quarter: 2008Q1

REPORT INFORMATION
  Report Type: 
  Country: None (occurrence: None)
  Receive Date: 20080110
  Receipt Date: 20071231
  Transmission Date: 20080703
  Serious: Yes (Death, Hospitalization)
  Sender: FDA-Public Use
  Company Number: B0502022A

PATIENT
  Age: 94 Year
  Sex: Female

DRUGS (6)
  1. AUGMENTIN '125' [Suspect]
     Dosage: 125MG THREE TIMES PER DAY
     Route: 048
     Dates: start: 20071013, end: 20071016
  2. CARDENSIEL [Suspect]
     Dosage: 1.25MG PER DAY
     Route: 048
     Dates: start: 20071012, end: 20071021
  3. ROXITROMYCIN [Suspect]
     Dosage: 150MG TWICE PER DAY
     Route: 048
     Dates: start: 20071012, end: 20071016
  4. RENITEC [Suspect]
     Dosage: 2.5MG PER DAY
     Route: 048
     Dates: start: 20071012, end: 20071022
  5. PARACETAMOL [Suspect]
     Indication: PAIN
     Dosage: 3G PER DAY
     Route: 048
     Dates: start: 20071012, end: 20071022
  6. INIPOMP [Suspect]
     Dosage: 40MG PER DAY
     Route: 048
     Dates: start: 20071013, end: 20071021

REACTIONS (5)
  - DEATH [None]
  - FAILURE TO THRIVE [None]
  - FOOD AVERSION [None]
  - HEPATIC ENZYME INCREASED [None]
  - TUBERCULOSIS TEST POSITIVE [None]
